FAERS Safety Report 7907466-0 (Version None)
Quarter: 2011Q4

REPORT INFORMATION
  Report Type: 
  Country: None (occurrence: None)
  Receive Date: 20111109
  Receipt Date: 20111109
  Transmission Date: 20120403
  Serious: Yes (Hospitalization)
  Sender: FDA-Public Use
  Company Number: None

PATIENT
  Sex: Male
  Weight: 55.7 kg

DRUGS (2)
  1. RITUXIMAB (MOAB C2B8 ANTI CD20, CHIMERIC) [Suspect]
     Dosage: 671.25 MG
  2. BENDAMUSTINE HYDROCHLORIDE [Suspect]
     Dosage: 322 MG

REACTIONS (8)
  - SPEECH DISORDER [None]
  - CEREBRAL INFARCTION [None]
  - FALL [None]
  - ORAL CANDIDIASIS [None]
  - THROMBOCYTOPENIA [None]
  - ORAL HERPES [None]
  - PERFORMANCE STATUS DECREASED [None]
  - CONFUSIONAL STATE [None]
